FAERS Safety Report 4806478-3 (Version None)
Quarter: 2005Q4

REPORT INFORMATION
  Report Type: 
  Country: None (occurrence: None)
  Receive Date: 20051019
  Receipt Date: 20050930
  Transmission Date: 20060501
  Serious: Yes (Hospitalization, Other)
  Sender: FDA-Public Use
  Company Number: USA0510110045

PATIENT
  Age: 16 Year
  Sex: Male

DRUGS (2)
  1. STRATTERA [Suspect]
     Dosage: 60 MG
     Dates: start: 20050826
  2. RITALIN [Concomitant]

REACTIONS (2)
  - INJURY ASPHYXIATION [None]
  - SUICIDE ATTEMPT [None]
